FAERS Safety Report 23846629 (Version 1)
Quarter: 2024Q2

REPORT INFORMATION
  Report Type: Spontaneous
  Country: US (occurrence: None)
  Receive Date: 20240513
  Receipt Date: 20240513
  Transmission Date: 20240716
  Serious: No
  Sender: FDA-Public Use
  Company Number: 2024A109936

PATIENT
  Age: 42 Year
  Sex: Female

DRUGS (3)
  1. PRILOSEC OTC [Suspect]
     Active Substance: OMEPRAZOLE MAGNESIUM
     Indication: Flatulence
     Dosage: 1 TABLET, 1 /DAY, ON AND OFF FOR THE LAST 3 MONTHS
     Route: 048
     Dates: start: 202402
  2. PEPCID AC [Concomitant]
     Active Substance: FAMOTIDINE
  3. CHARCOAL [Concomitant]
     Active Substance: ACTIVATED CHARCOAL
     Dosage: CHARCOAL TABS

REACTIONS (4)
  - Palpitations [Recovering/Resolving]
  - Hypertension [Recovering/Resolving]
  - Feeling abnormal [Unknown]
  - Incorrect product administration duration [Unknown]

NARRATIVE: CASE EVENT DATE: 20240101
